FAERS Safety Report 9377710 (Version 2)
Quarter: 2013Q3

REPORT INFORMATION
  Report Type: Spontaneous
  Country: US (occurrence: US)
  Receive Date: 20130701
  Receipt Date: 20130802
  Transmission Date: 20140515
  Serious: Yes (Death)
  Sender: FDA-Public Use
  Company Number: US-GILEAD-2013-0077930

PATIENT
  Age: 41 Year
  Sex: Female

DRUGS (2)
  1. CAYSTON [Suspect]
     Indication: CYSTIC FIBROSIS
     Dosage: 75 MG, UNK
     Route: 055
     Dates: start: 201002, end: 201103
  2. CAYSTON [Suspect]
     Indication: BACTERIAL DISEASE CARRIER

REACTIONS (5)
  - Respiratory failure [Fatal]
  - Bronchopneumonia [Fatal]
  - Hypoxia [Fatal]
  - Pulmonary haemorrhage [Fatal]
  - Oedema [Fatal]
